FAERS Safety Report 7421585-7 (Version None)
Quarter: 2011Q2

REPORT INFORMATION
  Report Type: 
  Country: None (occurrence: None)
  Receive Date: 20110418
  Receipt Date: 20110405
  Transmission Date: 20111010
  Serious: Yes (Other)
  Sender: FDA-Public Use
  Company Number: PHHY2010BR74703

PATIENT
  Sex: Female

DRUGS (2)
  1. EXELON [Suspect]
     Dosage: 3 MG, UNK
  2. EXELON [Suspect]
     Dosage: 1.5 MG, UNK

REACTIONS (3)
  - IRRITABILITY [None]
  - DEMENTIA [None]
  - SLEEP DISORDER [None]
